FAERS Safety Report 5753060-X (Version None)
Quarter: 2008Q2

REPORT INFORMATION
  Report Type: 
  Country: None (occurrence: None)
  Receive Date: 20080527
  Receipt Date: 20080515
  Transmission Date: 20081010
  Serious: Yes (Life-Threatening)
  Sender: FDA-Public Use
  Company Number: 82351

PATIENT
  Age: 53 Year
  Sex: Female

DRUGS (2)
  1. DOXYLAMINE SUCCINATE [Suspect]
     Dosage: PERRIGO COMPANY
     Dates: start: 20080513, end: 20080513
  2. ARCOXIA (ETORICOCOXIB) [Concomitant]

REACTIONS (3)
  - ASPHYXIA [None]
  - CYANOSIS [None]
  - DYSPNOEA [None]
